FAERS Safety Report 6261188-3 (Version None)
Quarter: 2009Q3

REPORT INFORMATION
  Report Type: 
  Country: None (occurrence: None)
  Receive Date: 20090709
  Receipt Date: 20080707
  Transmission Date: 20100115
  Serious: No
  Sender: FDA-Public Use
  Company Number: US-KINGPHARMUSA00001-K200800787

PATIENT
  Sex: Female
  Weight: 65.76 kg

DRUGS (3)
  1. LEVOXYL [Suspect]
     Indication: HYPOTHYROIDISM
     Dosage: 150 MCG, QD
     Route: 048
     Dates: start: 20080609
  2. CALCIUM [Concomitant]
  3. VITAMIN A [Concomitant]
     Dosage: UNK, UNK

REACTIONS (2)
  - FATIGUE [None]
  - FEELING COLD [None]
